FAERS Safety Report 8530341-8 (Version None)
Quarter: 2012Q3

REPORT INFORMATION
  Report Type: 
  Country: None (occurrence: None)
  Receive Date: 20120711
  Receipt Date: 20120419
  Transmission Date: 20120928
  Serious: Yes (Hospitalization, Other)
  Sender: FDA-Public Use
  Company Number: MC201200267

PATIENT
  Age: 83 Year
  Sex: Female

DRUGS (4)
  1. ANGIOMAX [Suspect]
     Indication: PERCUTANEOUS CORONARY INTERVENTION
     Dates: start: 20120401
  2. REOPRO [Concomitant]
  3. ASPIRIN [Concomitant]
  4. PRASUGREL (PRASUGREL) [Concomitant]

REACTIONS (3)
  - HAEMORRHAGE [None]
  - CORONARY ARTERY OCCLUSION [None]
  - THROMBOSIS IN DEVICE [None]
